FAERS Safety Report 4712225-6 (Version None)
Quarter: 2005Q3

REPORT INFORMATION
  Report Type: 
  Country: None (occurrence: None)
  Receive Date: 20050711
  Receipt Date: 20050627
  Transmission Date: 20060218
  Serious: Yes (Hospitalization)
  Sender: FDA-Public Use
  Company Number: 232767K05USA

PATIENT
  Age: 57 Year
  Sex: Female

DRUGS (2)
  1. REBIF [Suspect]
     Indication: MULTIPLE SCLEROSIS
     Dosage: 44 MCG, 3 IN 1 WEEKS,
     Dates: start: 20050405
  2. COUMADIN [Concomitant]

REACTIONS (7)
  - ANAEMIA [None]
  - CARDIAC VALVE DISEASE [None]
  - GASTROINTESTINAL HAEMORRHAGE [None]
  - INJECTION SITE URTICARIA [None]
  - OXYGEN SUPPLEMENTATION [None]
  - PROTEIN C DEFICIENCY [None]
  - PROTEIN S DEFICIENCY [None]
